FAERS Safety Report 8785172 (Version 2)
Quarter: 2012Q4

REPORT INFORMATION
  Report Type: 
  Country: DE (occurrence: DE)
  Receive Date: 20120914
  Receipt Date: 20121001
  Transmission Date: 20130627
  Serious: Yes (Hospitalization)
  Sender: FDA-Public Use
  Company Number: DE-TEVA-358112GER

PATIENT
  Age: 36 Year
  Sex: Female

DRUGS (4)
  1. DIAZEPAM [Suspect]
     Indication: SCHIZOPHRENIA, CATATONIC TYPE
     Dosage: 5 Milligram Daily;
     Route: 048
  2. BENPERIDOL [Suspect]
     Dosage: 5 Milligram Daily;
     Route: 048
  3. BIPERIDEN [Suspect]
     Dosage: 4 Milligram Daily;
     Route: 048
  4. LEVOMEPROMAZINE [Suspect]
     Dosage: 75 Milligram Daily;
     Route: 048

REACTIONS (2)
  - Hypothermia [Recovered/Resolved]
  - Atrioventricular block complete [Recovered/Resolved]
